FAERS Safety Report 20712283 (Version 3)
Quarter: 2022Q2

REPORT INFORMATION
  Report Type: Report from Study
  Country: US (occurrence: US)
  Receive Date: 20220415
  Receipt Date: 20220425
  Transmission Date: 20220721
  Serious: Yes (Death)
  Sender: FDA-Public Use
  Company Number: US-AMGEN-USACT2022064721

PATIENT
  Age: 58 Year
  Sex: Female
  Weight: 55.91 kg

DRUGS (24)
  1. AMG-510 [Suspect]
     Active Substance: AMG-510
     Indication: K-ras gene mutation
     Dosage: 720 MILLIGRAM
     Route: 048
     Dates: start: 20201221, end: 20220403
  2. AMG-510 [Suspect]
     Active Substance: AMG-510
     Indication: Non-small cell lung cancer stage III
  3. AFATINIB DIMALEATE [Suspect]
     Active Substance: AFATINIB DIMALEATE
     Indication: Non-small cell lung cancer stage III
     Dosage: 20 MILLIGRAM
     Route: 048
     Dates: start: 20201221, end: 20220403
  4. AFATINIB DIMALEATE [Suspect]
     Active Substance: AFATINIB DIMALEATE
     Indication: K-ras gene mutation
  5. KEPPRA [Concomitant]
     Active Substance: LEVETIRACETAM
     Dosage: 1000 MILLIGRAM
     Route: 048
     Dates: start: 202008, end: 20220410
  6. LOPERAMIDE [Concomitant]
     Active Substance: LOPERAMIDE
     Dosage: 2 MILLIGRAM
     Route: 048
     Dates: start: 20210222, end: 20220410
  7. FORTAMET [Concomitant]
     Active Substance: METFORMIN HYDROCHLORIDE
     Dosage: 1000 MILLIGRAM
     Route: 048
     Dates: start: 2016, end: 20220410
  8. ROXICODONE [Concomitant]
     Active Substance: OXYCODONE HYDROCHLORIDE
     Dosage: 5 MILLIGRAM
     Route: 048
     Dates: start: 2016, end: 20220410
  9. MIRALAX [Concomitant]
     Active Substance: POLYETHYLENE GLYCOL 3350
     Dosage: 17 GRAM
     Route: 048
     Dates: start: 2018, end: 20220410
  10. CLINDAMYCIN [Concomitant]
     Active Substance: CLINDAMYCIN
     Dosage: 1 GTT DROPS
     Route: 061
     Dates: start: 20210204, end: 20220410
  11. WESTCORT [Concomitant]
     Active Substance: HYDROCORTISONE VALERATE
     Dosage: 1 GTT DROPS
     Route: 061
     Dates: start: 20210810, end: 20220410
  12. TYLENOL [Concomitant]
     Active Substance: ACETAMINOPHEN
     Dosage: 1000 MILLIGRAM
     Route: 048
     Dates: start: 2016, end: 20220410
  13. ILOTYCIN [ERYTHROMYCIN] [Concomitant]
     Dosage: 1 GTT DROPS
     Route: 047
     Dates: start: 20210824, end: 20220410
  14. IMODIUM [Concomitant]
     Active Substance: LOPERAMIDE HYDROCHLORIDE
     Dosage: 2 MILLIGRAM
     Route: 048
     Dates: start: 20220131, end: 20220410
  15. ALBUTEROL SULFATE [Concomitant]
     Active Substance: ALBUTEROL SULFATE
     Dosage: 90 MICROGRAM
     Route: 045
     Dates: start: 2016, end: 20220410
  16. VITAMIN C [Concomitant]
     Active Substance: ASCORBIC ACID
     Dosage: 500 MILLIGRAM
     Route: 048
     Dates: start: 2016, end: 20220410
  17. SYMBICORT [Concomitant]
     Active Substance: BUDESONIDE\FORMOTEROL FUMARATE DIHYDRATE
     Dosage: 80 MICROGRAM
     Route: 045
     Dates: start: 2016, end: 20220410
  18. FLONASE [Concomitant]
     Active Substance: FLUTICASONE PROPIONATE
     Dosage: 50 MICROGRAM
     Route: 045
     Dates: start: 2016, end: 20220410
  19. CODEINE\GUAIFENESIN [Concomitant]
     Active Substance: CODEINE\GUAIFENESIN
     Dosage: 100 MILLIGRAM
     Route: 048
     Dates: start: 2016, end: 20220410
  20. HUMAN RED BLOOD CELL [Concomitant]
     Active Substance: HUMAN RED BLOOD CELL
     Dosage: UNK
  21. MONODOX [DOXYCYCLINE] [Concomitant]
     Dosage: 100 MILLIGRAM
     Route: 048
     Dates: start: 20220316, end: 20220410
  22. MARINOL [Concomitant]
     Active Substance: DRONABINOL
     Dosage: 2.5 MILLIGRAM
     Route: 048
     Dates: start: 20220406, end: 20220410
  23. PROTONIX [Concomitant]
     Active Substance: PANTOPRAZOLE SODIUM
     Dosage: 40 MILLIGRAM
     Route: 048
     Dates: start: 20220303, end: 20220410
  24. MEGESTROL [Concomitant]
     Active Substance: MEGESTROL
     Dosage: 5 MILLILITER
     Route: 048
     Dates: start: 20220406, end: 20220410

REACTIONS (1)
  - Lung adenocarcinoma [Fatal]

NARRATIVE: CASE EVENT DATE: 20220410
